FAERS Safety Report 9947567 (Version 1)
Quarter: 2014Q1

REPORT INFORMATION
  Report Type: Report from Study
  Country: US (occurrence: US)
  Receive Date: 20140303
  Receipt Date: 20140303
  Transmission Date: 20141002
  Serious: No
  Sender: FDA-Public Use
  Company Number: US-ABBVIE-13P-163-1063673-00

PATIENT
  Age: 50 Year
  Sex: Female
  Weight: 90.8 kg

DRUGS (5)
  1. HUMIRA [Suspect]
     Indication: PSORIASIS
     Dates: start: 2007
  2. HYZAAR [Concomitant]
     Indication: HYPERTENSION
  3. CLONAZEPAM [Concomitant]
     Indication: INSOMNIA
  4. LEVOTHYROXINE [Concomitant]
     Indication: AUTOIMMUNE THYROIDITIS
  5. IBUPROFEN [Concomitant]
     Indication: PAIN

REACTIONS (2)
  - Cough [Recovered/Resolved]
  - Sinusitis [Recovered/Resolved]
